FAERS Safety Report 8354843-2 (Version None)
Quarter: 2012Q2

REPORT INFORMATION
  Report Type: 
  Country: None (occurrence: None)
  Receive Date: 20120511
  Receipt Date: 20120502
  Transmission Date: 20120825
  Serious: Yes (Hospitalization)
  Sender: FDA-Public Use
  Company Number: VE-ROCHE-1066605

PATIENT
  Sex: Female

DRUGS (6)
  1. BENICAR [Concomitant]
     Indication: PRODUCT USED FOR UNKNOWN INDICATION
     Dates: start: 20100101
  2. ALENDRONATE SODIUM [Concomitant]
     Indication: PRODUCT USED FOR UNKNOWN INDICATION
     Dates: start: 19970101
  3. CALCIBON [Concomitant]
     Indication: PRODUCT USED FOR UNKNOWN INDICATION
     Dosage: 1500/2000 IU
     Dates: start: 19970101
  4. XOLAIR [Suspect]
     Indication: RESPIRATORY DISTRESS
     Route: 058
     Dates: start: 20101201, end: 20110301
  5. DAFLON (VENEZUELA) [Concomitant]
     Indication: PRODUCT USED FOR UNKNOWN INDICATION
     Dates: start: 20100701
  6. ESOMEPRAZOLE MAGNESIUM [Concomitant]
     Indication: PRODUCT USED FOR UNKNOWN INDICATION

REACTIONS (5)
  - INFLUENZA LIKE ILLNESS [None]
  - PNEUMONIA [None]
  - PLEURAL EFFUSION [None]
  - PULMONARY OEDEMA [None]
  - RESPIRATORY DISTRESS [None]
